FAERS Safety Report 17801483 (Version 2)
Quarter: 2020Q2

REPORT INFORMATION
  Report Type: Report from Study
  Country: FR (occurrence: FR)
  Receive Date: 20200519
  Receipt Date: 20200609
  Transmission Date: 20200714
  Serious: Yes (Hospitalization, Other)
  Sender: FDA-Public Use
  Company Number: NVSC2020FR134306

PATIENT
  Age: 52 Year
  Sex: Female
  Weight: 62 kg

DRUGS (3)
  1. RITUXIMAB. [Concomitant]
     Active Substance: RITUXIMAB
     Indication: PRODUCT USED FOR UNKNOWN INDICATION
     Route: 065
  2. ERELZI [Suspect]
     Active Substance: ETANERCEPT-SZZS
     Indication: PRODUCT USED FOR UNKNOWN INDICATION
     Dosage: 25 MG, QW
     Route: 058
     Dates: start: 20190327
  3. ENBREL [Concomitant]
     Active Substance: ETANERCEPT
     Indication: PRODUCT USED FOR UNKNOWN INDICATION
     Dosage: UNK
     Route: 058
     Dates: start: 2004, end: 201903

REACTIONS (15)
  - Q fever [Recovering/Resolving]
  - Zoonosis [Unknown]
  - Asthenia [Unknown]
  - Dyspnoea [Unknown]
  - Chest discomfort [Unknown]
  - Headache [Unknown]
  - Anosmia [Unknown]
  - Influenza like illness [Unknown]
  - Cough [Unknown]
  - Pyrexia [Unknown]
  - Coxiella infection [Recovering/Resolving]
  - Myalgia [Unknown]
  - Photophobia [Unknown]
  - Diarrhoea [Unknown]
  - Nausea [Unknown]

NARRATIVE: CASE EVENT DATE: 20200411
